FAERS Safety Report 8260257-6 (Version None)
Quarter: 2012Q2

REPORT INFORMATION
  Report Type: 
  Country: None (occurrence: None)
  Receive Date: 20120404
  Receipt Date: 20120329
  Transmission Date: 20120825
  Serious: Yes (Other)
  Sender: FDA-Public Use
  Company Number: US-PFIZER INC-2012080973

PATIENT
  Sex: Male
  Weight: 77.098 kg

DRUGS (4)
  1. NEURONTIN [Concomitant]
     Dosage: UNK
  2. CYMBALTA [Concomitant]
     Indication: ANXIETY
  3. LYRICA [Suspect]
     Indication: SCIATIC NERVE NEUROPATHY
     Dosage: UNK, 2X/DAY
     Route: 048
     Dates: start: 20120322
  4. CYMBALTA [Concomitant]
     Indication: DEPRESSION
     Dosage: UNK

REACTIONS (3)
  - HALLUCINATION, VISUAL [None]
  - HALLUCINATION, AUDITORY [None]
  - FALL [None]
